FAERS Safety Report 9674859 (Version 1)
Quarter: 2013Q4

REPORT INFORMATION
  Report Type: Report from Study
  Country: VE (occurrence: VE)
  Receive Date: 20131107
  Receipt Date: 20131107
  Transmission Date: 20140711
  Serious: Yes (Hospitalization)
  Sender: FDA-Public Use
  Company Number: PHHY2013VE124939

PATIENT
  Age: 61 Year
  Sex: Female

DRUGS (2)
  1. ACLASTA [Suspect]
     Indication: OSTEOPOROSIS
     Dosage: 5 MG, ANNUALLY
     Route: 042
     Dates: start: 2009
  2. ACLASTA [Suspect]
     Dosage: 5 MG, ANNUALLY
     Route: 042
     Dates: start: 2011

REACTIONS (4)
  - Diverticulum [Not Recovered/Not Resolved]
  - Bronchitis [Not Recovered/Not Resolved]
  - Osteoporosis [Not Recovered/Not Resolved]
  - Disease progression [Not Recovered/Not Resolved]
